FAERS Safety Report 9699932 (Version 4)
Quarter: 2013Q4

REPORT INFORMATION
  Report Type: Report from Study
  Country: US (occurrence: US)
  Receive Date: 20131121
  Receipt Date: 20131220
  Transmission Date: 20140711
  Serious: Yes (Hospitalization)
  Sender: FDA-Public Use
  Company Number: US-ROCHE-1287373

PATIENT
  Age: 64 Year
  Sex: Male
  Weight: 87.62 kg

DRUGS (14)
  1. BEVACIZUMAB [Suspect]
     Indication: COLON CANCER
     Dosage: DATE OF LAST DOSE PRIOR TO ABDOMINAL PAIN: 25/SEP/2013
     Route: 042
     Dates: start: 20130925, end: 20130925
  2. BEVACIZUMAB [Suspect]
     Dosage: LAST DOSE PRIOR TO HYPOKALEMIA:23/OCT/2013
     Route: 042
     Dates: start: 20131023, end: 20131023
  3. BEVACIZUMAB [Suspect]
     Route: 042
     Dates: start: 20131120
  4. CALCIUM FOLINATE [Suspect]
     Indication: COLORECTAL CANCER METASTATIC
     Dosage: DATE OF LAST DOSE PRIOR TO ABDOMINAL PAIN: 25/SEP/2013
     Route: 042
     Dates: start: 20130925, end: 20130925
  5. CALCIUM FOLINATE [Suspect]
     Dosage: LAST DOSE PRIOR TO HYPOKALEMIA: 23/OCT/2013
     Route: 042
     Dates: start: 20131023, end: 20131023
  6. CALCIUM FOLINATE [Suspect]
     Route: 042
     Dates: start: 20131120
  7. IRINOTECAN HYDROCHLORIDE [Suspect]
     Indication: COLORECTAL CANCER METASTATIC
     Dosage: DATE OF LAST DOSE PRIOR TO ABDOMINAL PAIN:25/SEP/2013
     Route: 042
     Dates: start: 20130925, end: 20130925
  8. IRINOTECAN HYDROCHLORIDE [Suspect]
     Dosage: LAST DOSE PRIOR TO HYPOKALEMIA: 23/OCT/2013
     Route: 042
     Dates: start: 20131023
  9. OXALIPLATIN [Suspect]
     Indication: COLORECTAL CANCER METASTATIC
     Dosage: DATE OF LAST DOSE PRIOR TO ABDOMINAL PAIN: 25/SEP/2013
     Route: 042
     Dates: start: 20130925, end: 20130925
  10. OXALIPLATIN [Suspect]
     Dosage: LAST DOSE PRIOR TO HYPOKALEMIA: 23/OCT/2013
     Route: 042
     Dates: start: 20131023, end: 20131023
  11. OXALIPLATIN [Suspect]
     Route: 042
     Dates: start: 20131120
  12. FLUOROURACIL [Suspect]
     Indication: COLORECTAL CANCER METASTATIC
     Dosage: DATE OF LAST DOSE PRIOR TO ABDOMINAL PAIN:25/SEP/2013
     Route: 041
     Dates: start: 20130925, end: 20130925
  13. FLUOROURACIL [Suspect]
     Dosage: LAST DOSE PRIOR TO HYPOKALEMIA: 23/OCT/2013
     Route: 042
     Dates: start: 20131023, end: 20131023
  14. FLUOROURACIL [Suspect]
     Route: 042
     Dates: start: 20131120

REACTIONS (2)
  - Abdominal pain [Not Recovered/Not Resolved]
  - Hypokalaemia [Recovered/Resolved]
